FAERS Safety Report 15839343 (Version 5)
Quarter: 2019Q1

REPORT INFORMATION
  Report Type: Report from Study
  Country: US (occurrence: US)
  Receive Date: 20190117
  Receipt Date: 20190221
  Transmission Date: 20190417
  Serious: Yes (Other)
  Sender: FDA-Public Use
  Company Number: US-TEVA-2019-US-997742

PATIENT
  Age: 37 Year
  Sex: Female

DRUGS (5)
  1. SPRINTEC [Concomitant]
     Active Substance: ETHINYL ESTRADIOL\NORGESTIMATE
     Dates: start: 20181025
  2. CLARAVIS [Suspect]
     Active Substance: ISOTRETINOIN
     Dosage: 40 MILLIGRAM DAILY;
     Route: 065
     Dates: start: 20181129, end: 20190107
  3. CLARAVIS [Suspect]
     Active Substance: ISOTRETINOIN
     Route: 065
  4. CLARAVIS [Suspect]
     Active Substance: ISOTRETINOIN
     Route: 065
  5. ABSORICA [Suspect]
     Active Substance: ISOTRETINOIN
     Route: 065

REACTIONS (3)
  - Treatment noncompliance [Unknown]
  - Unintended pregnancy [Unknown]
  - Vaginal haemorrhage [Unknown]

NARRATIVE: CASE EVENT DATE: 20181217
